FAERS Safety Report 15127164 (Version 1)
Quarter: 2018Q3

REPORT INFORMATION
  Report Type: Spontaneous
  Country: US (occurrence: US)
  Receive Date: 20180614
  Receipt Date: 20180614
  Transmission Date: 20181010
  Serious: Yes (Other)
  Sender: FDA-Public Use
  Company Number: None

PATIENT
  Age: 74 Year
  Sex: Male
  Weight: 96.75 kg

DRUGS (2)
  1. HEPARIN [Suspect]
     Active Substance: HEPARIN SODIUM
     Indication: DEEP VEIN THROMBOSIS
     Dosage: ?          OTHER DOSE:5000 UNITS;?
     Route: 058
     Dates: start: 20180507, end: 20180525
  2. HEPARIN [Suspect]
     Active Substance: HEPARIN SODIUM
     Indication: NEOPLASM MALIGNANT
     Route: 042
     Dates: start: 20180526, end: 20180530

REACTIONS (1)
  - Thrombocytopenia [None]

NARRATIVE: CASE EVENT DATE: 20180507
